FAERS Safety Report 15736004 (Version 1)
Quarter: 2018Q4

REPORT INFORMATION
  Report Type: Spontaneous
  Country: GB (occurrence: GB)
  Receive Date: 20181218
  Receipt Date: 20181218
  Transmission Date: 20190205
  Serious: Yes (Hospitalization)
  Sender: FDA-Public Use
  Company Number: GB-LANNETT COMPANY, INC.-GB-2018LAN001386

PATIENT

DRUGS (1)
  1. FLUOXETINE HYDROCHLORIDE. [Suspect]
     Active Substance: FLUOXETINE HYDROCHLORIDE
     Indication: DEPRESSION
     Dosage: SIXTY 20 MG TABLETS, (1.2 G TOTAL)
     Route: 048

REACTIONS (5)
  - Overdose [Unknown]
  - Generalised tonic-clonic seizure [Recovering/Resolving]
  - Serotonin syndrome [Recovering/Resolving]
  - Suicide attempt [Unknown]
  - Rhabdomyolysis [Recovering/Resolving]
